FAERS Safety Report 18694716 (Version 1)
Quarter: 2021Q1

REPORT INFORMATION
  Report Type: Other
  Country: AT (occurrence: AT)
  Receive Date: 20210104
  Receipt Date: 20210104
  Transmission Date: 20210419
  Serious: Yes (Life-Threatening)
  Sender: FDA-Public Use
  Company Number: AT-ROCHE-2743338

PATIENT
  Age: 75 Year
  Weight: 70 kg

DRUGS (8)
  1. FUROHEXAL [Concomitant]
  2. TOCILIZUMAB. [Suspect]
     Active Substance: TOCILIZUMAB
     Indication: GIANT CELL ARTERITIS
     Route: 058
     Dates: start: 201112
  3. CANDESARTAN. [Concomitant]
     Active Substance: CANDESARTAN
  4. APREDNISLON [Concomitant]
     Active Substance: PREDNISOLONE
     Dosage: 5 MG
  5. ITERIUM [Concomitant]
     Active Substance: RILMENIDINE
  6. XANOR [Concomitant]
     Active Substance: ALPRAZOLAM
  7. THROMBO ASS [Concomitant]
     Active Substance: ASPIRIN
  8. PRALUENT [Concomitant]
     Active Substance: ALIROCUMAB

REACTIONS (2)
  - Stent placement [Recovered/Resolved]
  - Coronary artery disease [Recovered/Resolved]

NARRATIVE: CASE EVENT DATE: 20200826
